FAERS Safety Report 7478599-0 (Version None)
Quarter: 2011Q2

REPORT INFORMATION
  Report Type: 
  Country: None (occurrence: None)
  Receive Date: 20110511
  Receipt Date: 20110511
  Transmission Date: 20111010
  Serious: Yes (Other)
  Sender: FDA-Public Use
  Company Number: None

PATIENT
  Age: 37 Year
  Sex: Female

DRUGS (2)
  1. TEMODAR [Suspect]
     Dosage: TEMODAR 20MG QD FOR 21 OF 28 DAYS PO
     Route: 048
     Dates: start: 20110401
  2. TEMODAR [Suspect]
     Dosage: TEMODAR 100MG QD FOR 21 OF 28 DAYS PO
     Route: 048

REACTIONS (4)
  - FATIGUE [None]
  - PRURITUS [None]
  - CONSTIPATION [None]
  - DRY SKIN [None]
